FAERS Safety Report 9473712 (Version 2)
Quarter: 2013Q3

REPORT INFORMATION
  Report Type: Spontaneous
  Country: US (occurrence: US)
  Receive Date: 20130823
  Receipt Date: 20130823
  Transmission Date: 20140515
  Serious: No
  Sender: FDA-Public Use
  Company Number: US-BRISTOL-MYERS SQUIBB COMPANY-16928079

PATIENT
  Age: 64 Year
  Sex: Female
  Weight: 93 kg

DRUGS (6)
  1. SPRYCEL [Suspect]
     Indication: CHRONIC MYELOID LEUKAEMIA
     Dosage: EXP DT FOR BACTH NUMBER 2D6051B: APR 2015
     Dates: start: 201103
  2. OMEPRAZOLE [Concomitant]
  3. TRICOR [Concomitant]
  4. SYNTHROID [Concomitant]
  5. LEVOTHYROXINE [Concomitant]
  6. SERTRALINE [Concomitant]

REACTIONS (7)
  - Rash [Unknown]
  - Dry skin [Unknown]
  - Alopecia [Unknown]
  - Rash macular [Unknown]
  - Fatigue [Unknown]
  - Dyspnoea [Unknown]
  - Urticaria [Unknown]
